FAERS Safety Report 15061006 (Version 2)
Quarter: 2019Q3

REPORT INFORMATION
  Report Type: Spontaneous
  Country: US (occurrence: US)
  Receive Date: 20180625
  Receipt Date: 20190701
  Transmission Date: 20191004
  Serious: No
  Sender: FDA-Public Use
  Company Number: US-ROCHE-2094703

PATIENT
  Sex: Male
  Weight: 72.57 kg

DRUGS (16)
  1. KLONOPIN [Suspect]
     Active Substance: CLONAZEPAM
     Indication: PRODUCT USED FOR UNKNOWN INDICATION
     Dosage: 0.5MG WANTS TO TAKE 4 AND WAS ONLY GIVEN 2
     Route: 065
  2. FISH OIL [Concomitant]
     Active Substance: FISH OIL
     Dosage: 100MG DAILY AT DINNER TIME
     Route: 065
  3. NORCO [Concomitant]
     Active Substance: ACETAMINOPHEN\HYDROCODONE BITARTRATE
     Indication: PAIN
     Dosage: 10/325MG, TAKES UP TO 3 TIMES DAILY AS NEEDED
     Route: 065
  4. IBUPROFEN. [Concomitant]
     Active Substance: IBUPROFEN
     Indication: PAIN
     Dosage: 800MG
     Route: 065
  5. VENTOLIN HFA [Concomitant]
     Active Substance: ALBUTEROL SULFATE
     Indication: COUGH
     Dosage: INHALER
     Route: 065
  6. CHANTIX [Suspect]
     Active Substance: VARENICLINE TARTRATE
     Indication: EX-TOBACCO USER
     Dosage: 1MG BY MOUTH TWICE DAILY, 1 IN MORNING BY MOUTH, 1MG WITH FOOD OR ENSURE LATER WITH DINNER
     Route: 048
  7. OYSTER SHELL CALCIUM [Concomitant]
     Active Substance: CALCIUM
     Indication: BLOOD CALCIUM
     Dosage: 500MG DAILY
     Route: 065
  8. TRAMADOL. [Concomitant]
     Active Substance: TRAMADOL
     Route: 065
  9. VENTOLIN HFA [Concomitant]
     Active Substance: ALBUTEROL SULFATE
     Indication: WHEEZING
  10. BISACODYL. [Concomitant]
     Active Substance: BISACODYL
     Dosage: 5MG TABLETS, 2 TABLETS BY MOUTH DAILY
     Route: 048
  11. OPISEZOL CODEINE [Concomitant]
  12. ASPIRIN [ACETYLSALICYLIC ACID] [Concomitant]
     Active Substance: ASPIRIN
     Dosage: 81MG DAILY IN THE MORNING
     Route: 065
  13. TAMSULOSIN HCL [Concomitant]
     Active Substance: TAMSULOSIN HYDROCHLORIDE
     Indication: PROSTATOMEGALY
     Route: 065
  14. GABAPENTIN. [Concomitant]
     Active Substance: GABAPENTIN
     Indication: PAIN IN EXTREMITY
     Route: 065
  15. GABAPENTIN. [Concomitant]
     Active Substance: GABAPENTIN
     Route: 065
  16. MUPIROCIN. [Concomitant]
     Active Substance: MUPIROCIN
     Dosage: FOR IF HE CUT OR INJURE HIMSELF
     Route: 065

REACTIONS (9)
  - Attention deficit/hyperactivity disorder [Unknown]
  - Dysgeusia [Recovered/Resolved]
  - Abnormal dreams [Recovered/Resolved]
  - Rhinorrhoea [Not Recovered/Not Resolved]
  - Affect lability [Recovered/Resolved]
  - Nausea [Recovered/Resolved]
  - Weight decreased [Not Recovered/Not Resolved]
  - Nightmare [Recovered/Resolved]
  - Intentional product misuse [Unknown]
